FAERS Safety Report 7475604-2 (Version None)
Quarter: 2011Q2

REPORT INFORMATION
  Report Type: 
  Country: None (occurrence: None)
  Receive Date: 20110512
  Receipt Date: 20110428
  Transmission Date: 20111010
  Serious: Yes (Disabling)
  Sender: FDA-Public Use
  Company Number: AU-MYLANLABS-2011S1008846

PATIENT
  Age: 29 Year
  Sex: Male

DRUGS (5)
  1. DIAZEPAM [Suspect]
     Indication: INSOMNIA
     Route: 048
  2. VALPROIC ACID [Suspect]
     Route: 065
  3. VALPROIC ACID [Suspect]
     Indication: BIPOLAR DISORDER
     Route: 048
  4. VALPROIC ACID [Suspect]
     Indication: INTENTIONAL OVERDOSE
     Route: 048
  5. VALPROIC ACID [Suspect]
     Route: 065

REACTIONS (6)
  - HYPERAMMONAEMIA [None]
  - RESPIRATORY DEPRESSION [None]
  - INTENTIONAL OVERDOSE [None]
  - ENCEPHALOPATHY [None]
  - BRAIN OEDEMA [None]
  - CEREBRAL INFARCTION [None]
